FAERS Safety Report 5492118-X (Version None)
Quarter: 2007Q4

REPORT INFORMATION
  Report Type: 
  Country: None (occurrence: None)
  Receive Date: 20071018
  Receipt Date: 20071011
  Transmission Date: 20080405
  Serious: Yes (Other)
  Sender: FDA-Public Use
  Company Number: 2007SP020727

PATIENT
  Age: 38 Year
  Sex: Male

DRUGS (2)
  1. PEG-INTRON [Suspect]
     Indication: HEPATITIS C
     Dates: start: 20070702
  2. REBETOL [Suspect]
     Indication: HEPATITIS C
     Dosage: ; PO
     Route: 048
     Dates: start: 20070702

REACTIONS (10)
  - ANOREXIA [None]
  - CELLULITIS [None]
  - DEHYDRATION [None]
  - FATIGUE [None]
  - HEADACHE [None]
  - INFLUENZA [None]
  - LIMB INJURY [None]
  - OEDEMA PERIPHERAL [None]
  - ONYCHOCLASIS [None]
  - VOMITING [None]
